FAERS Safety Report 4355034-2 (Version None)
Quarter: 2004Q2

REPORT INFORMATION
  Report Type: 
  Country: None (occurrence: None)
  Receive Date: 20040504
  Receipt Date: 20040420
  Transmission Date: 20050107
  Serious: Yes (Hospitalization)
  Sender: FDA-Public Use
  Company Number: 04P-129-0256613-00

PATIENT
  Age: 31 Year
  Sex: Female

DRUGS (2)
  1. ISOPTIN SR [Suspect]
     Indication: SUICIDE ATTEMPT
     Dosage: 120 MG, ORAL
     Route: 048
  2. METOPROLOL TARTRATE [Suspect]
     Indication: SUICIDE ATTEMPT
     Dosage: 50 MG, ORAL
     Route: 048

REACTIONS (14)
  - CONFUSIONAL STATE [None]
  - CYANOSIS [None]
  - DEPRESSED LEVEL OF CONSCIOUSNESS [None]
  - DRUG INEFFECTIVE [None]
  - DRUG TOXICITY [None]
  - INTENTIONAL OVERDOSE [None]
  - LEFT VENTRICULAR FAILURE [None]
  - MULTIPLE DRUG OVERDOSE [None]
  - OLIGURIA [None]
  - PNEUMONIA [None]
  - REFUSAL OF TREATMENT BY PATIENT [None]
  - RESPIRATORY FAILURE [None]
  - SHOCK [None]
  - SUICIDE ATTEMPT [None]
